FAERS Safety Report 14814130 (Version 1)
Quarter: 2018Q2

REPORT INFORMATION
  Report Type: Spontaneous
  Country: IT (occurrence: IT)
  Receive Date: 20180426
  Receipt Date: 20180426
  Transmission Date: 20180711
  Serious: Yes (Hospitalization)
  Sender: FDA-Public Use
  Company Number: IT-TEVA-2018-IT-885880

PATIENT
  Age: 67 Year
  Sex: Female

DRUGS (3)
  1. ALIFLUS DISKUS 50 MICROGRAMMI/500 MICROGRAMMI/DOSE DI POLVERE PER INAL [Concomitant]
     Route: 055
  2. REMERON [Concomitant]
     Active Substance: MIRTAZAPINE
  3. TERBINAFINE. [Suspect]
     Active Substance: TERBINAFINE
     Indication: PARONYCHIA
     Route: 048

REACTIONS (1)
  - Dermatitis exfoliative generalised [Not Recovered/Not Resolved]
